FAERS Safety Report 10444211 (Version 1)
Quarter: 2014Q3

REPORT INFORMATION
  Report Type: Spontaneous
  Country: TH (occurrence: TH)
  Receive Date: 20140910
  Receipt Date: 20140910
  Transmission Date: 20150326
  Serious: Yes (Hospitalization, Other)
  Sender: FDA-Public Use
  Company Number: TH-PAR PHARMACEUTICAL, INC-2014SCPR009378

PATIENT

DRUGS (7)
  1. NAPROXEN. [Concomitant]
     Active Substance: NAPROXEN
     Indication: PLANTAR FASCIITIS
     Dosage: UNK, UNKNOWN
     Route: 065
     Dates: end: 2007
  2. DEFEROXAMINE [Concomitant]
     Active Substance: DEFEROXAMINE\DEFEROXAMINE MESYLATE
     Indication: PRODUCT USED FOR UNKNOWN INDICATION
     Dosage: UNK, UNKNOWN
     Route: 065
  3. HYDROXYUREA. [Suspect]
     Active Substance: HYDROXYUREA
     Dosage: 4.5 G, WEEKLY
     Route: 065
     Dates: start: 2007, end: 201004
  4. WARFARIN [Concomitant]
     Active Substance: WARFARIN
     Indication: PRODUCT USED FOR UNKNOWN INDICATION
     Dosage: UNK, UNKNOWN
     Route: 065
  5. ASPIRIN. [Concomitant]
     Active Substance: ASPIRIN
     Indication: PRODUCT USED FOR UNKNOWN INDICATION
     Dosage: UNK, UNKNOWN
     Route: 065
  6. HYDROXYUREA. [Suspect]
     Active Substance: HYDROXYUREA
     Indication: HAEMOGLOBIN E-THALASSAEMIA DISEASE
     Dosage: 500 MG, / DAY FOR FIVE DAYS A WEEK
     Route: 065
     Dates: start: 200711
  7. FOLIC ACID. [Concomitant]
     Active Substance: FOLIC ACID
     Indication: PRODUCT USED FOR UNKNOWN INDICATION
     Dosage: UNK, UNKNOWN
     Route: 065

REACTIONS (8)
  - Large intestinal ulcer [Recovered/Resolved]
  - Mouth ulceration [Recovered/Resolved]
  - International normalised ratio increased [None]
  - Chronic gastritis [Recovered/Resolved]
  - Ocular icterus [Unknown]
  - Off label use [Unknown]
  - Ileal ulcer [Recovered/Resolved]
  - Haematochezia [None]

NARRATIVE: CASE EVENT DATE: 200712
